FAERS Safety Report 24408044 (Version 1)
Quarter: 2024Q4

REPORT INFORMATION
  Report Type: Spontaneous
  Country: US (occurrence: US)
  Receive Date: 20241007
  Receipt Date: 20241007
  Transmission Date: 20250115
  Serious: Yes (Life-Threatening, Hospitalization, Other)
  Sender: RECKITT BENCKISER
  Company Number: US-Indivior Limited-INDV-142826-2024

PATIENT
  Age: 38 Year
  Sex: Male

DRUGS (10)
  1. SUBLOCADE [Suspect]
     Active Substance: BUPRENORPHINE
     Indication: Drug use disorder
     Dosage: 300 MILLIGRAM, QMO
     Route: 065
     Dates: start: 20220901
  2. SUBLOCADE [Suspect]
     Active Substance: BUPRENORPHINE
  3. BUPRENORPHINE [Suspect]
     Active Substance: BUPRENORPHINE
     Indication: Drug use disorder
     Dosage: UNK (MICROINDUCTION DOSES)
     Route: 065
  4. BUPRENORPHINE [Suspect]
     Active Substance: BUPRENORPHINE
     Indication: Supplementation therapy
     Dosage: 8 MILLIGRAM, TID
     Route: 060
  5. BUPRENORPHINE [Suspect]
     Active Substance: BUPRENORPHINE
     Dosage: 8 MILLIGRAMS, UNK (SKIPPED DOSES UNTIL DISCONTINUATION)
     Route: 060
  6. BUPRENORPHINE [Suspect]
     Active Substance: BUPRENORPHINE
     Dosage: UNK (INDUCTION MULTIPLE ATTEMPTS)
     Route: 065
     Dates: start: 2022, end: 2022
  7. BUPRENORPHINE [Suspect]
     Active Substance: BUPRENORPHINE
     Dosage: 8 MILLIGRAM, TID
     Route: 060
     Dates: start: 20220901, end: 202209
  8. BUPRENORPHINE [Suspect]
     Active Substance: BUPRENORPHINE
     Dosage: 8 MILLIGRAM, UNKNOWN (SKIPPED DOSES 16 DAYS AND AGAIN 25 DAYS )
     Route: 060
     Dates: start: 2022
  9. FENTANYL [Suspect]
     Active Substance: FENTANYL
     Indication: Product used for unknown indication
     Dosage: UNK (INJECTED 6-10 BAGS OF FENTANYL DAILY)
     Route: 065
  10. FENTANYL [Suspect]
     Active Substance: FENTANYL
     Dosage: UNK (RESTARTED THE USE INTERMITTENTLY)
     Route: 065

REACTIONS (9)
  - Overdose [Recovered/Resolved]
  - Toxicity to various agents [Recovered/Resolved]
  - Drug detoxification [Unknown]
  - Off label use [Recovered/Resolved]
  - Inappropriate schedule of product administration [Unknown]
  - Treatment noncompliance [Unknown]
  - Wrong technique in product usage process [Recovered/Resolved]
  - Drug dependence [Unknown]
  - Anxiety [Unknown]

NARRATIVE: CASE EVENT DATE: 20220901
